FAERS Safety Report 17153585 (Version 1)
Quarter: 2019Q4

REPORT INFORMATION
  Report Type: Spontaneous
  Country: US (occurrence: US)
  Receive Date: 20191213
  Receipt Date: 20191213
  Transmission Date: 20200122
  Serious: No
  Sender: FDA-Public Use
  Company Number: US-ASTRAZENECA-2019SF64248

PATIENT
  Age: 84 Year
  Sex: Female

DRUGS (3)
  1. METFORMIN [Concomitant]
     Active Substance: METFORMIN HYDROCHLORIDE
     Indication: DIABETES MELLITUS
  2. BYDUREON [Suspect]
     Active Substance: EXENATIDE
     Route: 058
     Dates: start: 2019
  3. BYDUREON [Suspect]
     Active Substance: EXENATIDE
     Dosage: TWO TIMES A DAY
     Route: 058
     Dates: start: 2017

REACTIONS (6)
  - Cataract [Unknown]
  - Constipation [Unknown]
  - Nodule [Unknown]
  - Product use issue [Not Recovered/Not Resolved]
  - Pruritus [Unknown]
  - Bladder prolapse [Unknown]

NARRATIVE: CASE EVENT DATE: 2017
